FAERS Safety Report 16887475 (Version 1)
Quarter: 2019Q4

REPORT INFORMATION
  Report Type: Spontaneous
  Country: IT (occurrence: IT)
  Receive Date: 20191004
  Receipt Date: 20191004
  Transmission Date: 20200122
  Serious: Yes (Hospitalization, Other)
  Sender: FDA-Public Use
  Company Number: IT-AUROBINDO-AUR-APL-2019-064028

PATIENT
  Age: 25 Year
  Sex: Female

DRUGS (1)
  1. PAROXETINE FILM-COATED TABLET [Suspect]
     Active Substance: PAROXETINE
     Indication: PRODUCT USED FOR UNKNOWN INDICATION
     Dosage: 900 MILLIGRAM,TOTAL
     Route: 048

REACTIONS (3)
  - Agitation [Unknown]
  - Sinus tachycardia [Unknown]
  - Substance abuse [Unknown]

NARRATIVE: CASE EVENT DATE: 20190330
